FAERS Safety Report 7701865-8 (Version None)
Quarter: 2011Q3

REPORT INFORMATION
  Report Type: 
  Country: None (occurrence: None)
  Receive Date: 20110822
  Receipt Date: 20110809
  Transmission Date: 20111222
  Serious: Yes (Hospitalization)
  Sender: FDA-Public Use
  Company Number: IT-BAYER-2011-071714

PATIENT
  Age: 78 Year
  Sex: Female

DRUGS (8)
  1. ESCITALOPRAM [Suspect]
     Indication: ANXIETY
     Dosage: 10 MG, QD
     Route: 048
  2. DIPYRIDAMOLE [Suspect]
     Indication: CORONARY ARTERY DISEASE
  3. NITROGLYCERIN [Suspect]
     Indication: CORONARY ARTERY DISEASE
     Route: 062
  4. ACETYLSALICYLIC ACID SRT [Suspect]
     Indication: CORONARY ARTERY DISEASE
     Route: 048
  5. ESCITALOPRAM [Suspect]
     Indication: DEPRESSION
  6. INSULIN [Suspect]
     Indication: DIABETES MELLITUS
     Route: 058
  7. METOPROLOL [Suspect]
     Indication: CORONARY ARTERY DISEASE
     Route: 048
  8. PANTOPRAZOLE [Suspect]
     Route: 048

REACTIONS (1)
  - MYOCLONUS [None]
